FAERS Safety Report 7809705-3 (Version None)
Quarter: 2011Q4

REPORT INFORMATION
  Report Type: 
  Country: None (occurrence: None)
  Receive Date: 20111012
  Receipt Date: 20100922
  Transmission Date: 20120403
  Serious: Yes (Other)
  Sender: FDA-Public Use
  Company Number: JP-GLAXOSMITHKLINE-B0675722A

PATIENT
  Sex: Female

DRUGS (5)
  1. PACLITAXEL [Suspect]
     Indication: BREAST CANCER METASTATIC
     Dosage: 132MG WEEKLY
     Dates: start: 20100713, end: 20100720
  2. PACLITAXEL [Suspect]
     Dosage: 126MG WEEKLY
     Route: 042
     Dates: start: 20110914, end: 20110914
  3. TYKERB [Suspect]
     Dosage: 1500MG PER DAY
     Route: 048
     Dates: start: 20101027
  4. TYKERB [Suspect]
     Indication: BREAST CANCER METASTATIC
     Dosage: 1500MG PER DAY
     Route: 048
     Dates: start: 20100714, end: 20101007
  5. PACLITAXEL [Suspect]
     Indication: BREAST CANCER
     Dates: start: 20100908, end: 20100908

REACTIONS (1)
  - NEUTROPHIL COUNT DECREASED [None]
